FAERS Safety Report 22000828 (Version 2)
Quarter: 2023Q2

REPORT INFORMATION
  Report Type: Spontaneous
  Country: US (occurrence: US)
  Receive Date: 20230216
  Receipt Date: 20230410
  Transmission Date: 20230722
  Serious: Yes (Death, Hospitalization)
  Sender: FDA-Public Use
  Company Number: US-PFIZER INC-202200591961

PATIENT
  Age: 74 Year
  Sex: Male
  Weight: 81.65 kg

DRUGS (9)
  1. VYNDAMAX [Suspect]
     Active Substance: TAFAMIDIS
     Indication: Cardiac amyloidosis
     Dosage: 61 MG, 1X/DAY
  2. VYNDAMAX [Suspect]
     Active Substance: TAFAMIDIS
     Dosage: 61 MG, 2X/DAY
     Route: 048
     Dates: start: 20220406
  3. CARVEDILOL [Concomitant]
     Active Substance: CARVEDILOL
     Indication: Cardiac disorder
     Dosage: 1 DF, 2X/DAY
     Dates: start: 202110
  4. AMIODARONE [Concomitant]
     Active Substance: AMIODARONE
     Indication: Cardiac disorder
     Dosage: 1 DF, 2X/DAY
     Dates: start: 202110
  5. TORSEMIDE [Concomitant]
     Active Substance: TORSEMIDE
     Indication: Fluid retention
     Dosage: 1 DF, 1X/DAY (EVERY MORNING)
     Route: 048
     Dates: start: 202202
  6. ELIQUIS [Concomitant]
     Active Substance: APIXABAN
     Indication: Anticoagulant therapy
     Dosage: 5 MG
     Dates: start: 2021
  7. PREDNISONE [Concomitant]
     Active Substance: PREDNISONE
     Indication: Renal disorder
     Dosage: 5 MG
  8. ZYTIGA [Concomitant]
     Active Substance: ABIRATERONE ACETATE
     Indication: Blood testosterone abnormal
     Dosage: 1000 MG, DAILY
  9. ZYTIGA [Concomitant]
     Active Substance: ABIRATERONE ACETATE
     Indication: Prostatic specific antigen abnormal

REACTIONS (3)
  - Cardiac failure [Fatal]
  - Cardiogenic shock [Fatal]
  - Overdose [Unknown]

NARRATIVE: CASE EVENT DATE: 20220406
